FAERS Safety Report 19604291 (Version 3)
Quarter: 2022Q1

REPORT INFORMATION
  Report Type: Spontaneous
  Country: CH (occurrence: DE)
  Receive Date: 20210723
  Receipt Date: 20220301
  Transmission Date: 20220424
  Serious: Yes (Other)
  Sender: FDA-Public Use
  Company Number: CH-PFIZER INC-202100914247

PATIENT
  Sex: Male

DRUGS (1)
  1. CYTOTEC [Suspect]
     Active Substance: MISOPROSTOL
     Dosage: UNK
     Route: 064

REACTIONS (6)
  - Foetal exposure during delivery [Unknown]
  - Neonatal deafness [Recovering/Resolving]
  - Blindness [Recovering/Resolving]
  - Dysphagia [Not Recovered/Not Resolved]
  - Walking disability [Not Recovered/Not Resolved]
  - Speech disorder developmental [Not Recovered/Not Resolved]
